FAERS Safety Report 7618406-6 (Version None)
Quarter: 2011Q3

REPORT INFORMATION
  Report Type: 
  Country: None (occurrence: None)
  Receive Date: 20110718
  Receipt Date: 20110708
  Transmission Date: 20111222
  Serious: Yes (Other)
  Sender: FDA-Public Use
  Company Number: PHHY2011GR61233

PATIENT
  Age: 78 Year
  Sex: Male

DRUGS (1)
  1. VOLTAREN [Suspect]
     Indication: BACK PAIN
     Dosage: UNK UKN, UNK

REACTIONS (5)
  - URINARY TRACT INFECTION [None]
  - JOINT INJURY [None]
  - FALL [None]
  - ABASIA [None]
  - TREMOR [None]
